APPROVED DRUG PRODUCT: MINOXIDIL
Active Ingredient: MINOXIDIL
Strength: 10MG
Dosage Form/Route: TABLET;ORAL
Application: A071796 | Product #001
Applicant: ROYCE LABORATORIES INC
Approved: Nov 10, 1987 | RLD: No | RS: No | Type: DISCN